FAERS Safety Report 8518779-6 (Version None)
Quarter: 2012Q3

REPORT INFORMATION
  Report Type: 
  Country: None (occurrence: None)
  Receive Date: 20120718
  Receipt Date: 20120713
  Transmission Date: 20120928
  Serious: Yes (Other)
  Sender: FDA-Public Use
  Company Number: PHHY2012BR045541

PATIENT
  Sex: Male

DRUGS (4)
  1. METFORMIN HYDROCHLORIDE [Concomitant]
     Indication: DIABETES MELLITUS
     Dosage: 1000 MG, ONE TABLET DAILY
     Route: 048
  2. NOVOLIN N [Concomitant]
     Indication: DIABETES MELLITUS
     Dosage: 80 IU, DAILY
  3. DIOVAN HCT [Suspect]
     Indication: HYPERTENSION
     Dosage: 160/25 MG, EVERY DAY IN THE MORNING
     Route: 048
  4. VENALOT (TROXERUTIN/COUMARIN) [Concomitant]
     Indication: POOR PERIPHERAL CIRCULATION
     Dosage: 1 DF, DAILY
     Route: 048

REACTIONS (7)
  - LIMB INJURY [None]
  - NERVOUSNESS [None]
  - ANXIETY [None]
  - BLOOD PRESSURE INCREASED [None]
  - MOOD ALTERED [None]
  - MOOD SWINGS [None]
  - LIMB DISCOMFORT [None]
